FAERS Safety Report 22046115 (Version 2)
Quarter: 2023Q1

REPORT INFORMATION
  Report Type: Spontaneous
  Country: US (occurrence: US)
  Receive Date: 20230228
  Receipt Date: 20230228
  Transmission Date: 20230417
  Serious: No
  Sender: FDA-Public Use
  Company Number: US-ALLERGAN-2223929US

PATIENT
  Age: 63 Year
  Sex: Female

DRUGS (3)
  1. ESTRACE [Suspect]
     Active Substance: ESTRADIOL
     Indication: Menopause
     Dosage: 2 DF, Q WEEK, TOPICAL
     Dates: start: 2018, end: 202207
  2. ESTRACE [Suspect]
     Active Substance: ESTRADIOL
     Indication: Product used for unknown indication
  3. ESTRACE [Suspect]
     Active Substance: ESTRADIOL

REACTIONS (6)
  - Micturition urgency [Recovered/Resolved]
  - Hyperhidrosis [Recovered/Resolved]
  - Feeding disorder [Unknown]
  - Administration site pain [Recovered/Resolved]
  - Administration site irritation [Recovered/Resolved]
  - Abdominal pain upper [Recovered/Resolved]

NARRATIVE: CASE EVENT DATE: 20220701
